FAERS Safety Report 6925285-9 (Version None)
Quarter: 2010Q3

REPORT INFORMATION
  Report Type: 
  Country: None (occurrence: None)
  Receive Date: 20100810
  Receipt Date: 20100722
  Transmission Date: 20110219
  Serious: Yes (Hospitalization)
  Sender: FDA-Public Use
  Company Number: JPI-P-011615

PATIENT
  Age: 47 Year
  Sex: Female

DRUGS (3)
  1. XYREM [Suspect]
     Indication: PRODUCT USED FOR UNKNOWN INDICATION
     Dosage: 4.5 GM (2.25 GM,2 IN 1 D), ORAL, 9 GM (4.5 GM,2 IN 1 D),ORAL
     Route: 048
     Dates: start: 20100101, end: 20100101
  2. XYREM [Suspect]
     Indication: PRODUCT USED FOR UNKNOWN INDICATION
     Dosage: 4.5 GM (2.25 GM,2 IN 1 D), ORAL, 9 GM (4.5 GM,2 IN 1 D),ORAL
     Route: 048
     Dates: start: 20100101, end: 20100401
  3. XYREM [Suspect]
     Indication: PRODUCT USED FOR UNKNOWN INDICATION
     Dosage: 4.5 GM (2.25 GM,2 IN 1 D), ORAL, 9 GM (4.5 GM,2 IN 1 D),ORAL
     Route: 048
     Dates: start: 20100722

REACTIONS (3)
  - SKIN INFECTION [None]
  - SOFT TISSUE INFECTION [None]
  - STAPHYLOCOCCAL INFECTION [None]
